FAERS Safety Report 8416517-9 (Version None)
Quarter: 2012Q2

REPORT INFORMATION
  Report Type: 
  Country: None (occurrence: None)
  Receive Date: 20120606
  Receipt Date: 20111226
  Transmission Date: 20120825
  Serious: Yes (Death)
  Sender: FDA-Public Use
  Company Number: US-GLAXOSMITHKLINE-A0959385A

PATIENT
  Age: 74 Year
  Sex: Female
  Weight: 61 kg

DRUGS (5)
  1. ALDACTONE [Concomitant]
  2. LETAIRIS [Concomitant]
  3. FLOLAN [Suspect]
     Indication: PULMONARY ARTERIAL HYPERTENSION
     Dosage: 73NGKM CONTINUOUS
     Route: 065
     Dates: start: 19991101
  4. ADCIRCA [Concomitant]
  5. CARDIZEM [Concomitant]

REACTIONS (2)
  - DEATH [None]
  - ABDOMINAL DISTENSION [None]
